FAERS Safety Report 21192645 (Version 2)
Quarter: 2022Q3

REPORT INFORMATION
  Report Type: Spontaneous
  Country: CN (occurrence: CN)
  Receive Date: 20220810
  Receipt Date: 20220816
  Transmission Date: 20221027
  Serious: Yes (Life-Threatening)
  Sender: FDA-Public Use
  Company Number: CN-SUN PHARMACEUTICAL INDUSTRIES LTD-2022R1-348107

PATIENT
  Age: 48 Year
  Sex: Male

DRUGS (2)
  1. CARBOPLATIN [Suspect]
     Active Substance: CARBOPLATIN
     Indication: Chemotherapy
     Dosage: 600 MILLIGRAM/ D2 (Q3W)
     Route: 065
     Dates: start: 20181229
  2. DOCETAXEL [Suspect]
     Active Substance: DOCETAXEL
     Indication: Chemotherapy
     Dosage: 140 MILLIGRAM/ D1
     Route: 065
     Dates: start: 20181229

REACTIONS (1)
  - Myelosuppression [Recovered/Resolved]
